FAERS Safety Report 8278298-1 (Version None)
Quarter: 2012Q2

REPORT INFORMATION
  Report Type: 
  Country: None (occurrence: None)
  Receive Date: 20120412
  Receipt Date: 20110718
  Transmission Date: 20120825
  Serious: No
  Sender: FDA-Public Use
  Company Number: US-ASTRAZENECA-2011SE42931

PATIENT
  Age: 86 Year
  Sex: Male
  Weight: 64.4 kg

DRUGS (7)
  1. NEXIUM [Suspect]
     Route: 048
  2. METOPROLOL TARTRATE [Concomitant]
  3. ASMANEX TWISTHALER [Concomitant]
  4. FORADIL [Concomitant]
  5. ALBUTEROL [Concomitant]
  6. OMEPRAZOLE [Suspect]
     Route: 048
  7. NEXIUM [Suspect]
     Indication: GASTROOESOPHAGEAL REFLUX DISEASE
     Route: 048

REACTIONS (5)
  - DISCOMFORT [None]
  - DYSPEPSIA [None]
  - DRUG DOSE OMISSION [None]
  - WEIGHT DECREASED [None]
  - GASTROOESOPHAGEAL REFLUX DISEASE [None]
